FAERS Safety Report 6511207-1 (Version None)
Quarter: 2009Q4

REPORT INFORMATION
  Report Type: 
  Country: None (occurrence: None)
  Receive Date: 20091222
  Receipt Date: 20090226
  Transmission Date: 20100525
  Serious: No
  Sender: FDA-Public Use
  Company Number: US-ASTRAZENECA-2009UW05370

PATIENT
  Sex: Male

DRUGS (8)
  1. CRESTOR [Suspect]
     Indication: BLOOD CHOLESTEROL
     Route: 048
  2. ALLEGRA [Concomitant]
     Indication: MULTIPLE ALLERGIES
  3. AMLODIPINE BESYLATE [Concomitant]
  4. CARDURA [Concomitant]
     Indication: CARDIAC DISORDER
  5. COUMADIN [Concomitant]
     Indication: COAGULATION TIME SHORTENED
  6. SOMA [Concomitant]
     Indication: SLEEP DISORDER
  7. TENORMIN [Concomitant]
     Indication: CARDIAC DISORDER
     Route: 048
  8. VICODIN [Concomitant]

REACTIONS (2)
  - BLOOD CHOLESTEROL INCREASED [None]
  - WRONG TECHNIQUE IN DRUG USAGE PROCESS [None]
